FAERS Safety Report 5590100-5 (Version None)
Quarter: 2008Q1

REPORT INFORMATION
  Report Type: 
  Country: None (occurrence: None)
  Receive Date: 20080114
  Receipt Date: 20070618
  Transmission Date: 20080703
  Serious: No
  Sender: FDA-Public Use
  Company Number: US-ABBOTT-07P-163-0372238-00

PATIENT
  Sex: Male
  Weight: 42 kg

DRUGS (2)
  1. OMNICEF [Suspect]
     Indication: PHARYNGITIS
     Dosage: 250MG/5CC
     Route: 048
     Dates: start: 20070610, end: 20070614
  2. OMNICEF [Suspect]
     Dosage: 250MG/5CC
     Route: 048
     Dates: start: 20070614

REACTIONS (1)
  - DIARRHOEA [None]
